FAERS Safety Report 20359938 (Version 2)
Quarter: 2022Q1

REPORT INFORMATION
  Report Type: Report from Study
  Country: US (occurrence: US)
  Receive Date: 20220121
  Receipt Date: 20220224
  Transmission Date: 20220423
  Serious: Yes (Hospitalization, Other)
  Sender: FDA-Public Use
  Company Number: US-BEH-2022140811

PATIENT
  Age: 63 Year
  Sex: Female

DRUGS (1)
  1. HIZENTRA [Suspect]
     Active Substance: HUMAN IMMUNOGLOBULIN G
     Indication: Immunodeficiency common variable
     Dosage: 16 GRAM
     Route: 065

REACTIONS (6)
  - Pulmonary oedema [Recovering/Resolving]
  - Insurance issue [Recovering/Resolving]
  - Therapy interrupted [Recovering/Resolving]
  - Pneumonia aspiration [Unknown]
  - Pneumonia aspiration [Unknown]
  - Pneumonia aspiration [Unknown]

NARRATIVE: CASE EVENT DATE: 20211226
